FAERS Safety Report 19865599 (Version 3)
Quarter: 2021Q4

REPORT INFORMATION
  Report Type: Report from Study
  Country: AU (occurrence: AU)
  Receive Date: 20210922
  Receipt Date: 20211203
  Transmission Date: 20220303
  Serious: Yes (Other)
  Sender: FDA-Public Use
  Company Number: AU-BAYER-2021-209420

PATIENT

DRUGS (2)
  1. EYLEA [Suspect]
     Active Substance: AFLIBERCEPT
     Indication: Neovascular age-related macular degeneration
     Dosage: INTRAVITREAL INJECTION TO RIGHT EYE
     Route: 031
     Dates: start: 202003
  2. EYLEA [Suspect]
     Active Substance: AFLIBERCEPT
     Dosage: LAST RIGHT EYE INJECTION
     Route: 031
     Dates: start: 202107, end: 202107

REACTIONS (7)
  - Blindness transient [Recovered/Resolved with Sequelae]
  - Corneal abrasion [Recovered/Resolved]
  - Eye injury [Unknown]
  - Vision blurred [Recovered/Resolved with Sequelae]
  - Lacrimation increased [Unknown]
  - Injection site pain [Unknown]
  - Visual impairment [Recovered/Resolved with Sequelae]

NARRATIVE: CASE EVENT DATE: 20210701
